APPROVED DRUG PRODUCT: ESOMEPRAZOLE MAGNESIUM
Active Ingredient: ESOMEPRAZOLE MAGNESIUM
Strength: EQ 2.5MG BASE/PACKET
Dosage Form/Route: FOR SUSPENSION, DELAYED RELEASE;ORAL
Application: A217714 | Product #001 | TE Code: AB
Applicant: CIPLA LTD
Approved: Jan 7, 2025 | RLD: No | RS: No | Type: RX